FAERS Safety Report 9759630 (Version 1)
Quarter: 2013Q4

REPORT INFORMATION
  Report Type: Spontaneous
  Country: US (occurrence: US)
  Receive Date: 20131216
  Receipt Date: 20131216
  Transmission Date: 20140711
  Serious: No
  Sender: FDA-Public Use
  Company Number: US-GILEAD-2010-0028468

PATIENT
  Sex: Female
  Weight: 53.52 kg

DRUGS (14)
  1. LETAIRIS [Suspect]
     Indication: PULMONARY ARTERIAL HYPERTENSION
     Route: 048
     Dates: start: 20090224
  2. REVATIO [Concomitant]
  3. TEKTURNA [Concomitant]
  4. CIPRO [Concomitant]
  5. BENICAR [Concomitant]
  6. ALIGN [Concomitant]
  7. ZANTAC [Concomitant]
  8. PRILOSEC [Concomitant]
  9. COUMADIN [Concomitant]
  10. FOLTX [Concomitant]
  11. LUNESTA [Concomitant]
  12. FERROUS SULFATE [Concomitant]
  13. METHYLPREDNISOLONE [Concomitant]
  14. XIFAXAN [Concomitant]

REACTIONS (1)
  - Nasal congestion [Unknown]
